FAERS Safety Report 5001169-0 (Version None)
Quarter: 2006Q2

REPORT INFORMATION
  Report Type: 
  Country: None (occurrence: None)
  Receive Date: 20060512
  Receipt Date: 20060502
  Transmission Date: 20061013
  Serious: Yes (Other)
  Sender: FDA-Public Use
  Company Number: SG-ABBOTT-06P-141-0332488-00

PATIENT

DRUGS (1)
  1. ADALIMUMAB (HUMIRA 40 MG/ 0.8 ML PRE-FILLED SYRINGE) [Suspect]
     Indication: DRUG USE FOR UNKNOWN INDICATION
     Dosage: NOT REPORTED

REACTIONS (2)
  - SYNOVITIS [None]
  - TENOSYNOVITIS [None]
